FAERS Safety Report 4979005-8 (Version None)
Quarter: 2006Q2

REPORT INFORMATION
  Report Type: 
  Country: None (occurrence: None)
  Receive Date: 20060419
  Receipt Date: 20060419
  Transmission Date: 20061013
  Serious: Yes (Hospitalization)
  Sender: FDA-Public Use
  Company Number: None

PATIENT

DRUGS (1)
  1. CORDARONE [Suspect]
     Dosage: 200MG   Q 12 HOURS  PO
     Route: 048

REACTIONS (1)
  - HEPATITIS [None]
